FAERS Safety Report 21376513 (Version 1)
Quarter: 2022Q3

REPORT INFORMATION
  Report Type: Spontaneous
  Country: DE (occurrence: DE)
  Receive Date: 20220926
  Receipt Date: 20220926
  Transmission Date: 20221027
  Serious: Yes (Hospitalization, Other)
  Sender: FDA-Public Use
  Company Number: DE-ADRED-05471-01

PATIENT
  Age: 77 Year
  Sex: Male
  Weight: 60 kg

DRUGS (12)
  1. METOPROLOL [Suspect]
     Active Substance: METOPROLOL
     Indication: Product used for unknown indication
     Dosage: 47.5 MILLIGRAM DAILY; 47.5 MG, 0-0-1-0, PROLONGED-RELEASE TABLETS
  2. DUTASTERIDE\TAMSULOSIN [Suspect]
     Active Substance: DUTASTERIDE\TAMSULOSIN
     Indication: Product used for unknown indication
     Dosage: 1 DOSAGE FORMS DAILY; 0.5|0.4 MG, 0-0-1-0
  3. RIVASTIGMINE [Suspect]
     Active Substance: RIVASTIGMINE
     Indication: Product used for unknown indication
     Dosage: 9.5 MILLIGRAM DAILY; 9.5 MG/24H, EVERY 2D, TRANSDERMAL PATCH
  4. PANTOPRAZOLE [Concomitant]
     Active Substance: PANTOPRAZOLE
     Indication: Product used for unknown indication
     Dosage: 20 MILLIGRAM DAILY; 20 MG, 1-0-0-0, TABLETTEN
  5. FEBUXOSTAT [Concomitant]
     Active Substance: FEBUXOSTAT
     Indication: Product used for unknown indication
     Dosage: 80 MILLIGRAM DAILY; 80 MG, 1-0-0-0
  6. EDOXABAN [Concomitant]
     Active Substance: EDOXABAN
     Indication: Product used for unknown indication
     Dosage: 30 MG, PAUSED
  7. ENOXAPARIN [Concomitant]
     Active Substance: ENOXAPARIN
     Indication: Product used for unknown indication
     Dosage: 40 MILLIGRAM DAILY; 40 MG, 0-0-1-0, PRE-FILLED SYRINGES
  8. ATORVASTATIN [Concomitant]
     Active Substance: ATORVASTATIN
     Indication: Product used for unknown indication
     Dosage: 10 MILLIGRAM DAILY; 10 MG, 0-0-1-0
  9. MOVICOL JUNIOR AROMA-FREE [Concomitant]
     Indication: Product used for unknown indication
     Dosage: 1 DOSAGE FORMS DAILY; 1-0-0-0, ORAL POWDER ,  MOVICOL JUNIOR AROMAFREI
  10. RINGER ACETATE SOLUTION BERNBURG [Concomitant]
     Indication: Product used for unknown indication
     Dosage: 2 DOSAGE FORMS DAILY; 1-0-1-0
  11. CO-TRIMOXAZOLE AL FORTE [Concomitant]
     Indication: Product used for unknown indication
     Dosage: NK
  12. BENSERAZIDE\LEVODOPA [Concomitant]
     Active Substance: BENSERAZIDE\LEVODOPA
     Indication: Product used for unknown indication
     Dosage: 4 DOSAGE FORMS DAILY; 25|100 MG, 1-1-1-1

REACTIONS (3)
  - Urinary tract infection [Unknown]
  - Loss of consciousness [Unknown]
  - Tachypnoea [Unknown]
